FAERS Safety Report 8964919 (Version 3)
Quarter: 2013Q1

REPORT INFORMATION
  Report Type: Spontaneous
  Country: CN (occurrence: CN)
  Receive Date: 20121213
  Receipt Date: 20130304
  Transmission Date: 20140127
  Serious: Yes (Hospitalization)
  Sender: FDA-Public Use
  Company Number: CN-ASTRAZENECA-2012SE91438

PATIENT
  Age: 74 Year
  Sex: Male

DRUGS (5)
  1. SYMBICORT TURBUHALER [Suspect]
     Indication: ASTHMA
     Dosage: 1 SPRAY BID
     Route: 055
  2. PULMICORT [Suspect]
     Dosage: 2 PCS BID DURING HOSPITALIZATION
     Route: 055
     Dates: start: 20121129, end: 20121129
  3. PULMICORT [Suspect]
     Dosage: 2 PCS BID DURING HOSPITALIZATION
     Route: 055
     Dates: start: 20121130, end: 20121130
  4. BRICANYL [Suspect]
     Route: 055
  5. ANTIBIOTIC [Concomitant]

REACTIONS (3)
  - Chronic obstructive pulmonary disease [Unknown]
  - Drug hypersensitivity [Recovered/Resolved]
  - Rash [Recovered/Resolved]
